FAERS Safety Report 19133917 (Version 1)
Quarter: 2021Q2

REPORT INFORMATION
  Report Type: Spontaneous
  Country: US (occurrence: US)
  Receive Date: 20210414
  Receipt Date: 20210414
  Transmission Date: 20210717
  Serious: No
  Sender: FDA-Public Use
  Company Number: US-ACCORD-206165

PATIENT
  Sex: Male
  Weight: 77.11 kg

DRUGS (1)
  1. FINASTERIDE. [Suspect]
     Active Substance: FINASTERIDE
     Indication: PROSTATOMEGALY
     Dosage: STRENGTH: 5MG
     Route: 048
     Dates: start: 20200813

REACTIONS (9)
  - Libido decreased [Not Recovered/Not Resolved]
  - Abdominal pain upper [Not Recovered/Not Resolved]
  - Terminal insomnia [Not Recovered/Not Resolved]
  - Burning sensation [Not Recovered/Not Resolved]
  - Urethral pain [Not Recovered/Not Resolved]
  - Hot flush [Not Recovered/Not Resolved]
  - Condition aggravated [Not Recovered/Not Resolved]
  - Drug ineffective [Unknown]
  - Groin pain [Not Recovered/Not Resolved]
